FAERS Safety Report 25539969 (Version 1)
Quarter: 2025Q3

REPORT INFORMATION
  Report Type: Spontaneous
  Country: US (occurrence: None)
  Receive Date: 20250710
  Receipt Date: 20250710
  Transmission Date: 20251020
  Serious: Yes (Hospitalization)
  Sender: FDA-CTU
  Company Number: None

PATIENT
  Sex: Male

DRUGS (1)
  1. PAZOPANIB [Suspect]
     Active Substance: PAZOPANIB
     Indication: Soft tissue sarcoma
     Dosage: FREQUENCY : DAILY;?
     Route: 048
     Dates: start: 20250514, end: 20250521

REACTIONS (3)
  - Atrial fibrillation [None]
  - Renal disorder [None]
  - Hypotension [None]
